FAERS Safety Report 5277588-4 (Version None)
Quarter: 2007Q1

REPORT INFORMATION
  Report Type: 
  Country: None (occurrence: None)
  Receive Date: 20070321
  Receipt Date: 20070312
  Transmission Date: 20070707
  Serious: Yes (Hospitalization)
  Sender: FDA-Public Use
  Company Number: 2007311211

PATIENT
  Age: 39 Year
  Sex: Male
  Weight: 113.3993 kg

DRUGS (1)
  1. VISINE L.R. [Suspect]
     Indication: EYE INFECTION
     Dosage: 2 DROP PER EYE TWO
     Dates: start: 20070201, end: 20070201

REACTIONS (1)
  - MYDRIASIS [None]
